FAERS Safety Report 8088027-2 (Version None)
Quarter: 2012Q1

REPORT INFORMATION
  Report Type: 
  Country: None (occurrence: None)
  Receive Date: 20120128
  Receipt Date: 20110527
  Transmission Date: 20120608
  Serious: No
  Sender: FDA-Public Use
  Company Number: US-ABBOTT-11P-163-0729028-00

PATIENT
  Age: 57 Year
  Sex: Female

DRUGS (10)
  1. XANAX [Concomitant]
     Indication: DEPRESSION
  2. LITHIUM CARBONATE [Concomitant]
     Indication: DEPRESSION
  3. PREDNISONE TAB [Concomitant]
     Indication: PRODUCT USED FOR UNKNOWN INDICATION
  4. ABILIFY [Concomitant]
     Indication: DEPRESSION
  5. ASPIRIN [Concomitant]
     Indication: PRODUCT USED FOR UNKNOWN INDICATION
  6. FABB [Concomitant]
     Indication: VITAMIN SUPPLEMENTATION
  7. HUMIRA [Suspect]
     Indication: RHEUMATOID ARTHRITIS
     Dosage: INITIAL DOSE
     Dates: start: 20110520
  8. PRISTIQ [Concomitant]
     Indication: DEPRESSION
  9. LIPITOR [Concomitant]
     Indication: BLOOD CHOLESTEROL INCREASED
  10. AZATHIOPRINE [Concomitant]
     Indication: RHEUMATOID ARTHRITIS

REACTIONS (3)
  - NASOPHARYNGITIS [None]
  - SINUS CONGESTION [None]
  - COUGH [None]
